FAERS Safety Report 7212335-8 (Version None)
Quarter: 2010Q4

REPORT INFORMATION
  Report Type: 
  Country: None (occurrence: None)
  Receive Date: 20101227
  Receipt Date: 20101210
  Transmission Date: 20110411
  Serious: Yes (Hospitalization)
  Sender: FDA-Public Use
  Company Number: 023548

PATIENT
  Sex: Female

DRUGS (1)
  1. CIMZIA [Suspect]
     Dosage: 200 MG,  TOOK 1 DOSE, SUBCUTANEOUS
     Route: 058
     Dates: start: 20101118, end: 20100101

REACTIONS (2)
  - BLOOD COUNT ABNORMAL [None]
  - LIVER DISORDER [None]
